FAERS Safety Report 7709228-6 (Version None)
Quarter: 2011Q3

REPORT INFORMATION
  Report Type: 
  Country: None (occurrence: None)
  Receive Date: 20110825
  Receipt Date: 20110818
  Transmission Date: 20111222
  Serious: Yes (Hospitalization, Other)
  Sender: FDA-Public Use
  Company Number: US-ROCHE-798388

PATIENT
  Sex: Female
  Weight: 62.1 kg

DRUGS (2)
  1. IXEMPRA KIT [Concomitant]
     Dosage: PUT ON HOLD
     Route: 042
     Dates: start: 20110801
  2. CAPECITABINE [Suspect]
     Dosage: PUT ON HOLD, 500 MG TAB
     Route: 048
     Dates: start: 20110801

REACTIONS (7)
  - STOMATITIS [None]
  - DEHYDRATION [None]
  - NAUSEA [None]
  - RASH PRURITIC [None]
  - VOMITING [None]
  - DISORIENTATION [None]
  - DIARRHOEA [None]
